FAERS Safety Report 8312258-7 (Version None)
Quarter: 2012Q2

REPORT INFORMATION
  Report Type: 
  Country: None (occurrence: None)
  Receive Date: 20120425
  Receipt Date: 20120419
  Transmission Date: 20120825
  Serious: Yes (Death, Life-Threatening, Other)
  Sender: FDA-Public Use
  Company Number: JP-CELGENEUS-087-50794-11113768

PATIENT
  Age: 76 Year
  Sex: Male
  Weight: 59 kg

DRUGS (17)
  1. PANTOSIN [Concomitant]
     Route: 065
     Dates: end: 20111106
  2. TETRAMIDE [Concomitant]
     Route: 065
     Dates: end: 20111106
  3. ZOLPIDEM [Concomitant]
     Route: 065
     Dates: end: 20111106
  4. OMEPRAZOLE [Concomitant]
     Route: 065
     Dates: end: 20111106
  5. ALENDRONATE SODIUM [Concomitant]
     Route: 065
     Dates: end: 20111106
  6. ACETAMINOPHEN [Concomitant]
     Route: 065
     Dates: end: 20111106
  7. PREDNISOLONE [Concomitant]
     Route: 065
     Dates: end: 20111106
  8. MEROPENEM [Concomitant]
     Route: 065
     Dates: start: 20111105, end: 20111106
  9. VIDAZA [Suspect]
     Dosage: 37.5 MILLIGRAM/SQ. METER
     Route: 041
     Dates: start: 20111017, end: 20111023
  10. CONIEL [Concomitant]
     Route: 065
     Dates: end: 20111106
  11. ASPIRIN [Concomitant]
     Route: 065
     Dates: end: 20111106
  12. ENTERONON-R [Concomitant]
     Route: 065
     Dates: end: 20111106
  13. GRAN [Concomitant]
     Route: 065
     Dates: start: 20111106, end: 20111106
  14. TICLOPIDINE HCL [Concomitant]
     Route: 065
     Dates: end: 20111106
  15. TAMSULOSIN HCL [Concomitant]
     Route: 065
     Dates: end: 20111106
  16. GLAKAY [Concomitant]
     Route: 065
     Dates: end: 20111106
  17. CEFEPIME [Concomitant]
     Route: 065
     Dates: start: 20111023, end: 20111105

REACTIONS (6)
  - PNEUMONIA [None]
  - GASTROINTESTINAL HAEMORRHAGE [None]
  - RENAL FAILURE ACUTE [None]
  - WHITE BLOOD CELL COUNT DECREASED [None]
  - SEPSIS [None]
  - NEUTROPHIL COUNT DECREASED [None]
